FAERS Safety Report 25057074 (Version 5)
Quarter: 2025Q2

REPORT INFORMATION
  Report Type: Spontaneous
  Country: DE (occurrence: DE)
  Receive Date: 20250310
  Receipt Date: 20250509
  Transmission Date: 20250717
  Serious: Yes (Hospitalization, Other)
  Sender: EMD SERONO INC
  Company Number: None

PATIENT
  Age: 26 Year
  Sex: Female

DRUGS (15)
  1. GONAL-F [Suspect]
     Active Substance: FOLLITROPIN
     Indication: Assisted reproductive technology
     Dosage: 150 INTERNATIONAL UNIT DAILY
     Dates: start: 20250109, end: 20250113
  2. GONAL-F [Suspect]
     Active Substance: FOLLITROPIN
     Dosage: 200 INTERNATIONAL UNIT DAILY
     Dates: start: 20250114, end: 20250119
  3. GONAL-F [Suspect]
     Active Substance: FOLLITROPIN
     Dosage: 150 INTERNATIONAL UNIT ONCE/SINGLE
     Dates: start: 20250120, end: 20250120
  4. TRIPTORELIN ACETATE [Suspect]
     Active Substance: TRIPTORELIN ACETATE
     Indication: Assisted reproductive technology
     Dates: start: 20250120, end: 20250120
  5. PROGESTERONE [Suspect]
     Active Substance: PROGESTERONE
     Indication: Assisted reproductive technology
     Dates: start: 20250122, end: 20250123
  6. PROGESTERONE [Suspect]
     Active Substance: PROGESTERONE
     Dates: start: 20250124, end: 20250209
  7. DUPHASTON [Suspect]
     Active Substance: DYDROGESTERONE
     Indication: Assisted reproductive technology
     Dosage: 30 MG, DAILY
     Dates: start: 20250122, end: 20250209
  8. ESTRADIOL [Suspect]
     Active Substance: ESTRADIOL
     Indication: Assisted reproductive technology
     Dosage: 4MG, 2 TIMES DAILY
     Dates: start: 20250124, end: 20250209
  9. ESTRADIOL [Suspect]
     Active Substance: ESTRADIOL
     Dosage: 6 MG 2 TIMES DAILY
     Dates: start: 20250124, end: 20250209
  10. GONADOTROPHIN, CHORIONIC [Suspect]
     Active Substance: GONADOTROPHIN, CHORIONIC
     Indication: Assisted reproductive technology
     Dates: start: 20250122, end: 20250122
  11. GONADOTROPHIN, CHORIONIC [Suspect]
     Active Substance: GONADOTROPHIN, CHORIONIC
     Dates: start: 20250127, end: 20250127
  12. GONADOTROPHIN, CHORIONIC [Suspect]
     Active Substance: GONADOTROPHIN, CHORIONIC
     Dosage: 375 INTERNATIONAL UNIT DAILY
     Dates: start: 20250124, end: 20250124
  13. ASPIRIN [Suspect]
     Active Substance: ASPIRIN
     Indication: Assisted reproductive technology
     Dosage: 150 MG, DAILY
     Dates: start: 20250124, end: 20250209
  14. GANIRELIX ACETATE [Suspect]
     Active Substance: GANIRELIX ACETATE
     Indication: Assisted reproductive technology
     Dosage: 0.25 MG, DAIY
     Dates: start: 20250114, end: 20250119
  15. ESTRADIOL [Suspect]
     Active Substance: ESTRADIOL
     Indication: Assisted reproductive technology

REACTIONS (3)
  - Ovarian hyperstimulation syndrome [Recovered/Resolved]
  - Thrombophlebitis [Recovered/Resolved]
  - Underdose [Recovered/Resolved]

NARRATIVE: CASE EVENT DATE: 20250122
